FAERS Safety Report 9128594 (Version 2)
Quarter: 2013Q1

REPORT INFORMATION
  Report Type: Spontaneous
  Country: DE (occurrence: DE)
  Receive Date: 20130228
  Receipt Date: 20130327
  Transmission Date: 20140127
  Serious: Yes (Life-Threatening, Other)
  Sender: FDA-Public Use
  Company Number: DE-ROCHE-1189590

PATIENT
  Age: 71 Year
  Sex: Male
  Weight: 66 kg

DRUGS (14)
  1. MABTHERA [Suspect]
     Indication: CHRONIC LYMPHOCYTIC LEUKAEMIA
     Route: 042
     Dates: start: 20120828
  2. MABTHERA [Suspect]
     Route: 042
     Dates: start: 20121011
  3. BENDAMUSTINE [Suspect]
     Indication: CHRONIC LYMPHOCYTIC LEUKAEMIA
     Route: 042
     Dates: start: 20120829
  4. BENDAMUSTINE [Suspect]
     Route: 042
     Dates: start: 20120830
  5. BENDAMUSTINE [Suspect]
     Route: 042
     Dates: start: 20121011
  6. BENDAMUSTINE [Suspect]
     Route: 042
     Dates: start: 20121213
  7. BENDAMUSTINE [Suspect]
     Route: 042
     Dates: start: 20130114
  8. BENDAMUSTINE [Suspect]
     Route: 042
     Dates: start: 20130115
  9. RANTUDIL [Concomitant]
     Indication: RHEUMATOID ARTHRITIS
     Route: 048
  10. ASS [Concomitant]
     Indication: VASCULITIS
     Route: 048
  11. ALLOPURINOL [Concomitant]
     Route: 048
     Dates: start: 20120818
  12. PANTOZOL [Concomitant]
     Route: 048
     Dates: start: 20120828
  13. COTRIM FORTE [Concomitant]
     Route: 048
     Dates: start: 20120818
  14. FOLSAURE [Concomitant]
     Route: 048
     Dates: start: 20120818

REACTIONS (3)
  - Progressive multifocal leukoencephalopathy [Unknown]
  - Neutropenia [Recovered/Resolved]
  - Skin infection [Recovered/Resolved]
